FAERS Safety Report 19548293 (Version 1)
Quarter: 2021Q3

REPORT INFORMATION
  Report Type: Spontaneous
  Country: US (occurrence: US)
  Receive Date: 20210715
  Receipt Date: 20210715
  Transmission Date: 20211014
  Serious: No
  Sender: FDA-Public Use
  Company Number: US-JNJFOC-20210554360

PATIENT
  Age: 40 Year
  Sex: Female

DRUGS (6)
  1. COVID?19 VACCINE [Concomitant]
     Indication: PRODUCT USED FOR UNKNOWN INDICATION
     Dosage: RIGHT ARM
     Route: 065
     Dates: start: 20210427
  2. BENADRYL [Suspect]
     Active Substance: DIPHENHYDRAMINE HYDROCHLORIDE
     Indication: VACCINATION COMPLICATION
  3. TYLENOL [Suspect]
     Active Substance: ACETAMINOPHEN
     Indication: PYREXIA
  4. TYLENOL [Suspect]
     Active Substance: ACETAMINOPHEN
     Indication: VACCINATION COMPLICATION
  5. BENADRYL [Suspect]
     Active Substance: DIPHENHYDRAMINE HYDROCHLORIDE
     Indication: URTICARIA
     Route: 065
     Dates: start: 2021
  6. TYLENOL [Suspect]
     Active Substance: ACETAMINOPHEN
     Indication: URTICARIA
     Route: 065
     Dates: start: 20210428

REACTIONS (2)
  - Therapeutic response unexpected [Unknown]
  - Product use in unapproved indication [Unknown]

NARRATIVE: CASE EVENT DATE: 2021
